FAERS Safety Report 21734985 (Version 1)
Quarter: 2022Q4

REPORT INFORMATION
  Report Type: Spontaneous
  Country: ES (occurrence: None)
  Receive Date: 20221215
  Receipt Date: 20221215
  Transmission Date: 20230113
  Serious: Yes (Other)
  Sender: FDA-Public Use
  Company Number: ES-ROCHE-3189669

PATIENT
  Age: 44 Year
  Sex: Male

DRUGS (1)
  1. OCREVUS [Suspect]
     Active Substance: OCRELIZUMAB
     Indication: Multiple sclerosis
     Route: 042
     Dates: start: 202203

REACTIONS (4)
  - Dyshidrotic eczema [Recovered/Resolved]
  - Photosensitivity reaction [Recovered/Resolved]
  - Erythema [Recovered/Resolved]
  - Superinfection [Unknown]

NARRATIVE: CASE EVENT DATE: 20220501
